FAERS Safety Report 8128371-3 (Version None)
Quarter: 2012Q1

REPORT INFORMATION
  Report Type: 
  Country: None (occurrence: None)
  Receive Date: 20120210
  Receipt Date: 20120131
  Transmission Date: 20120608
  Serious: Yes (Hospitalization)
  Sender: FDA-Public Use
  Company Number: JP-NAPPMUNDI-MAG-2012-0002041

PATIENT
  Age: 70 Year
  Sex: Female

DRUGS (6)
  1. AMOBAN [Concomitant]
     Route: 048
  2. URSO                               /00465701/ [Concomitant]
     Route: 048
  3. TIZANIDINE HCL [Concomitant]
     Route: 048
  4. DICLOFENAC SODIUM [Concomitant]
     Route: 048
  5. BUPRENORPHINE [Suspect]
     Indication: PAIN IN EXTREMITY
     Dosage: 5 MCG, Q1H
     Route: 062
     Dates: start: 20120109, end: 20120117
  6. PAXIL [Concomitant]
     Dosage: UNK
     Route: 048

REACTIONS (3)
  - CARDIAC FAILURE [None]
  - DEPRESSED LEVEL OF CONSCIOUSNESS [None]
  - RESPIRATORY DEPRESSION [None]
